FAERS Safety Report 6328655-5 (Version None)
Quarter: 2009Q3

REPORT INFORMATION
  Report Type: 
  Country: None (occurrence: None)
  Receive Date: 20090825
  Receipt Date: 20090825
  Transmission Date: 20100115
  Serious: No
  Sender: FDA-Public Use
  Company Number: None

PATIENT
  Age: 48 Year
  Sex: Male
  Weight: 70.3075 kg

DRUGS (1)
  1. CRESTOR [Suspect]
     Indication: BLOOD CHOLESTEROL INCREASED
     Dosage: 1 TABLET ONE PER DAY PO
     Route: 048
     Dates: start: 20081001, end: 20090313

REACTIONS (7)
  - ANXIETY [None]
  - DEMENTIA ALZHEIMER'S TYPE [None]
  - DISTURBANCE IN ATTENTION [None]
  - FEAR [None]
  - MEMORY IMPAIRMENT [None]
  - PARANOIA [None]
  - SOCIAL AVOIDANT BEHAVIOUR [None]
